FAERS Safety Report 7514004-3 (Version None)
Quarter: 2011Q2

REPORT INFORMATION
  Report Type: 
  Country: None (occurrence: None)
  Receive Date: 20110531
  Receipt Date: 20110520
  Transmission Date: 20111010
  Serious: Yes (Hospitalization)
  Sender: FDA-Public Use
  Company Number: JP-UCBSA-010284

PATIENT
  Sex: Female

DRUGS (12)
  1. CIMZIA [Suspect]
     Indication: RHEUMATOID ARTHRITIS
     Route: 058
     Dates: start: 20091228, end: 20100421
  2. EPINASTINE HYDROCHLORIDE [Concomitant]
     Dates: start: 20090829
  3. OLMESARTAN MEDOXOMIL [Concomitant]
     Dates: start: 20090829
  4. ASPIRIN [Concomitant]
     Dates: start: 20100401
  5. METHOTREXATE [Concomitant]
     Dosage: MONDAY: 2 MG IN THE MORNING AND EVENING, TUESDAY: 2 MG IN THE MORNING
     Dates: start: 20071101
  6. EZETIMIBE [Concomitant]
     Dates: start: 20090829
  7. BISOPROLOL FUMARATE [Concomitant]
     Dates: start: 20090829
  8. KETOPROFEN [Concomitant]
     Dosage: 30 MG AND 40 MG
     Dates: start: 20090829
  9. FOLIC ACID [Concomitant]
     Dates: start: 20090828
  10. AMLODIPINE BESYLATE [Concomitant]
     Dates: start: 20090829
  11. MEDROL [Concomitant]
     Indication: RHEUMATOID ARTHRITIS
     Route: 048
     Dates: start: 20090828
  12. LOXOPROFEN SODIUM [Concomitant]
     Dates: start: 20090828

REACTIONS (1)
  - MENINGITIS NONINFECTIVE [None]
